FAERS Safety Report 18860902 (Version 2)
Quarter: 2021Q1

REPORT INFORMATION
  Report Type: Report from Study
  Country: US (occurrence: US)
  Receive Date: 20210208
  Receipt Date: 20210315
  Transmission Date: 20210420
  Serious: No
  Sender: FDA-Public Use
  Company Number: NVSC2021US027482

PATIENT
  Sex: Female

DRUGS (1)
  1. TABRECTA [Suspect]
     Active Substance: CAPMATINIB
     Indication: PRODUCT USED FOR UNKNOWN INDICATION
     Dosage: UNK (HALF DOSE)
     Route: 065
     Dates: start: 20210111

REACTIONS (3)
  - Peripheral swelling [Unknown]
  - Cough [Unknown]
  - Nausea [Unknown]
